FAERS Safety Report 7865381-5 (Version None)
Quarter: 2011Q4

REPORT INFORMATION
  Report Type: 
  Country: None (occurrence: None)
  Receive Date: 20111028
  Receipt Date: 20101204
  Transmission Date: 20120403
  Serious: No
  Sender: FDA-Public Use
  Company Number: US-GLAXOSMITHKLINE-A0898784A

PATIENT
  Sex: Female

DRUGS (1)
  1. ADVAIR DISKUS 100/50 [Suspect]
     Indication: COUGH
     Route: 065

REACTIONS (3)
  - MUSCLE SPASMS [None]
  - NONSPECIFIC REACTION [None]
  - PAIN IN EXTREMITY [None]
